FAERS Safety Report 7591402-3 (Version None)
Quarter: 2011Q3

REPORT INFORMATION
  Report Type: 
  Country: None (occurrence: None)
  Receive Date: 20110706
  Receipt Date: 20110623
  Transmission Date: 20111222
  Serious: Yes (Death, Other)
  Sender: FDA-Public Use
  Company Number: JP-AMGEN-JPNCT2011029289

PATIENT
  Age: 60 Year
  Sex: Male
  Weight: 67 kg

DRUGS (15)
  1. DECADRON [Concomitant]
     Dosage: UNK
     Route: 042
  2. HIRUDOID [Concomitant]
     Dosage: UNK
     Route: 062
  3. FLUOROURACIL [Suspect]
     Route: 041
     Dates: start: 20101124, end: 20101124
  4. FLUOROURACIL [Suspect]
     Indication: COLORECTAL CANCER
     Route: 040
     Dates: start: 20101124, end: 20101124
  5. LEUCOVORIN CALCIUM [Suspect]
     Indication: COLORECTAL CANCER
     Route: 041
     Dates: start: 20101124, end: 20101124
  6. ALDACTONE [Concomitant]
     Dosage: UNK
     Route: 048
  7. LASIX [Concomitant]
     Dosage: UNK
     Route: 048
  8. EMEND [Concomitant]
     Dosage: UNK
     Route: 048
  9. ISODINE [Concomitant]
     Indication: STOMATITIS
     Dosage: UNK
     Route: 049
  10. PANITUMUMAB [Suspect]
     Indication: COLORECTAL CANCER
     Dosage: 6 MG/KG, Q2WK
     Route: 041
     Dates: start: 20101124, end: 20110420
  11. IRINOTECAN HCL [Suspect]
     Indication: COLORECTAL CANCER
     Route: 041
     Dates: start: 20101124, end: 20101124
  12. MINOCYCLINE HCL [Concomitant]
     Dosage: UNK
     Route: 048
  13. KYTRIL [Concomitant]
     Dosage: UNK
     Route: 042
  14. DEXALTIN [Concomitant]
     Indication: STOMATITIS
     Dosage: UNK
     Route: 062
  15. CORTICOSTEROIDS [Concomitant]
     Indication: PROPHYLAXIS
     Dosage: UNK
     Route: 065

REACTIONS (5)
  - ECZEMA [None]
  - COLORECTAL CANCER [None]
  - HEPATIC FUNCTION ABNORMAL [None]
  - PLEURAL EFFUSION [None]
  - STOMATITIS [None]
